FAERS Safety Report 4517281-6 (Version None)
Quarter: 2004Q4

REPORT INFORMATION
  Report Type: 
  Country: None (occurrence: None)
  Receive Date: 20041008
  Receipt Date: 20040806
  Transmission Date: 20050328
  Serious: No
  Sender: FDA-Public Use
  Company Number: 2004S1000165

PATIENT
  Age: 66 Year
  Sex: Female

DRUGS (15)
  1. CUBICIN [Suspect]
     Indication: ENTEROCOCCAL BACTERAEMIA
     Dosage: IV
     Route: 042
     Dates: start: 20040727
  2. CUBICIN [Suspect]
     Indication: GLYCOPEPTIDE ANTIBIOTIC RESISTANT ENTEROCOCCAL INFECTION
     Dosage: IV
     Route: 042
     Dates: start: 20040727
  3. CLOPIDOGREL [Concomitant]
  4. SALICYLIC ACID [Concomitant]
  5. CAPTOPRIL [Concomitant]
  6. FUROSEMIDE [Concomitant]
  7. PRAVASTATIN [Concomitant]
  8. LANSOPRAZOLE [Concomitant]
  9. METHYLPREDNISOLONE [Concomitant]
  10. ALBUTEROL [Concomitant]
  11. IPRATROPIUM BROMIDE [Concomitant]
  12. METOCLOPRAMIDE [Concomitant]
  13. FOLIC ACID [Concomitant]
  14. VANCOMYCIN [Concomitant]
  15. CEFAZOLIN [Concomitant]

REACTIONS (1)
  - PANCYTOPENIA [None]
